FAERS Safety Report 7486069-9 (Version None)
Quarter: 2011Q2

REPORT INFORMATION
  Report Type: 
  Country: None (occurrence: None)
  Receive Date: 20110517
  Receipt Date: 20110321
  Transmission Date: 20111010
  Serious: Yes (Other)
  Sender: FDA-Public Use
  Company Number: US-BAYER-2011-025751

PATIENT
  Sex: Female

DRUGS (2)
  1. YASMIN [Suspect]
  2. YAZ [Suspect]

REACTIONS (5)
  - BRAIN INJURY [None]
  - INJURY [None]
  - PAIN [None]
  - CEREBRAL THROMBOSIS [None]
  - DEEP VEIN THROMBOSIS [None]
